FAERS Safety Report 23669389 (Version 1)
Quarter: 2024Q1

REPORT INFORMATION
  Report Type: Report from Study
  Country: US (occurrence: US)
  Receive Date: 20240325
  Receipt Date: 20240325
  Transmission Date: 20240409
  Serious: Yes (Hospitalization)
  Sender: FDA-Public Use
  Company Number: US-Eisai-EC-2024-162034

PATIENT
  Age: 67 Year
  Sex: Female
  Weight: 64.8 kg

DRUGS (13)
  1. LENVIMA [Suspect]
     Active Substance: LENVATINIB
     Indication: Endometrial cancer
     Dosage: MISSED TWO DOSES BECAUSE SHE WAS OUT OF HOME AND CAME BACK HOME LATE.
     Route: 048
     Dates: start: 20231217
  2. LOSARTAN [Concomitant]
     Active Substance: LOSARTAN
     Dosage: DOSE AND FREQUENCY UNKNOWN
  3. SYNTHROID [Concomitant]
     Active Substance: LEVOTHYROXINE SODIUM
     Dosage: DOSE AND FREQUENCY UNKNOWN
  4. JANUMET [Concomitant]
     Active Substance: METFORMIN HYDROCHLORIDE\SITAGLIPTIN PHOSPHATE
     Dosage: DOSE AND FREQUENCY UNKNOWN
  5. GLIPIZIDE [Concomitant]
     Active Substance: GLIPIZIDE
     Dosage: DOSE AND FREQUENCY UNKNOWN
  6. LEVALBUTEROL [Concomitant]
     Active Substance: LEVALBUTEROL
     Dosage: DOSE AND FREQUENCY UNKNOWN
  7. ALBUTEROL [Concomitant]
     Active Substance: ALBUTEROL
     Dosage: DOSE AND FREQUENCY UNKNOWN
  8. KEYTRUDA [Concomitant]
     Active Substance: PEMBROLIZUMAB
     Dosage: DOSE AND FREQUENCY UNKNOWN
  9. BRILINTA [Concomitant]
     Active Substance: TICAGRELOR
     Dosage: DOSE AND FREQUENCY UNKNOWN
  10. AMLODIPINE [Concomitant]
     Active Substance: AMLODIPINE BESYLATE
     Dosage: DOSE AND FREQUENCY UNKNOWN
  11. ATORVASTATIN [Concomitant]
     Active Substance: ATORVASTATIN
     Dosage: DOSE AND FREQUENCY UNKNOWN
  12. ASPIRIN [Concomitant]
     Active Substance: ASPIRIN
     Dosage: DOSE AND FREQUENCY UNKNOWN
  13. ISOSORBIDE [Concomitant]
     Active Substance: ISOSORBIDE
     Dosage: DOSE AND FREQUENCY UNKNOWN

REACTIONS (1)
  - Pleural effusion [Recovered/Resolved]

NARRATIVE: CASE EVENT DATE: 20240219
